FAERS Safety Report 4531458-5 (Version None)
Quarter: 2004Q4

REPORT INFORMATION
  Report Type: 
  Country: None (occurrence: None)
  Receive Date: 20041216
  Receipt Date: 20041203
  Transmission Date: 20050328
  Serious: Yes (Death, Life-Threatening, Hospitalization)
  Sender: FDA-Public Use
  Company Number: PERC20040072

PATIENT
  Age: 31 Year
  Sex: Female

DRUGS (5)
  1. PERCOCET [Suspect]
     Dosage: PO
     Route: 048
     Dates: start: 20030101, end: 20030101
  2. CLONIDINE [Suspect]
     Dosage: PO
     Route: 048
     Dates: start: 20030101, end: 20030101
  3. BENZODIAZEPINE [Suspect]
     Route: 048
     Dates: start: 20030101, end: 20030101
  4. HYDROMORPHONE [Suspect]
     Dosage: PO
     Route: 048
     Dates: start: 20030101, end: 20030101
  5. LITHIUM [Suspect]
     Dosage: PO
     Route: 048
     Dates: start: 20030101, end: 20030101

REACTIONS (8)
  - BLOOD PH DECREASED [None]
  - COMA [None]
  - COMPLETED SUICIDE [None]
  - HEPATIC FAILURE [None]
  - HEPATOTOXICITY [None]
  - INTENTIONAL MISUSE [None]
  - INTERNATIONAL NORMALISED RATIO INCREASED [None]
  - LOSS OF CONSCIOUSNESS [None]
